FAERS Safety Report 8891405 (Version 1)
Quarter: 2013Q1

REPORT INFORMATION
  Report Type: Spontaneous
  Country: US (occurrence: None)
  Receive Date: 20121105
  Receipt Date: 20121105
  Transmission Date: 20140127
  Serious: Yes (Hospitalization)
  Sender: FDA-Public Use
  Company Number: None

PATIENT
  Age: 64 Year
  Sex: Female
  Weight: 56.8 kg

DRUGS (1)
  1. INVESTIGATIONAL DRUG [Suspect]
     Route: 042
     Dates: start: 20121024

REACTIONS (8)
  - Blood bilirubin increased [None]
  - Nausea [None]
  - Vomiting [None]
  - Chills [None]
  - Aspartate aminotransferase increased [None]
  - Blood creatinine increased [None]
  - Proteinuria [None]
  - Abdominal pain [None]
